FAERS Safety Report 15695142 (Version 4)
Quarter: 2020Q1

REPORT INFORMATION
  Report Type: Report from Study
  Country: FR (occurrence: FR)
  Receive Date: 20181206
  Receipt Date: 20200103
  Transmission Date: 20200409
  Serious: Yes (Hospitalization)
  Sender: FDA-Public Use
  Company Number: PHHO2018FR012841

PATIENT
  Age: 61 Year
  Sex: Male
  Weight: 77 kg

DRUGS (4)
  1. TICAGRELOR. [Concomitant]
     Active Substance: TICAGRELOR
     Route: 065
  2. PRAVASTATIN. [Concomitant]
     Active Substance: PRAVASTATIN
     Dosage: UNK
     Route: 065
     Dates: start: 20170125
  3. PEGINTERFERON ALFA-2A. [Suspect]
     Active Substance: PEGINTERFERON ALFA-2A
     Indication: CHRONIC MYELOID LEUKAEMIA
     Dosage: 30 UG, WEEKLY
     Route: 058
     Dates: start: 20150405, end: 20171016
  4. AMN107 [Suspect]
     Active Substance: NILOTINIB
     Indication: CHRONIC MYELOID LEUKAEMIA
     Dosage: 300 MG, UNK
     Route: 048
     Dates: start: 20151202, end: 20181129

REACTIONS (1)
  - Myocardial infarction [Recovered/Resolved with Sequelae]

NARRATIVE: CASE EVENT DATE: 20181129
